FAERS Safety Report 7652547-2 (Version None)
Quarter: 2011Q3

REPORT INFORMATION
  Report Type: 
  Country: None (occurrence: None)
  Receive Date: 20110722
  Receipt Date: 20110511
  Transmission Date: 20111222
  Serious: Yes (Hospitalization)
  Sender: FDA-Public Use
  Company Number: UTC-007048

PATIENT
  Age: 55 Year
  Sex: Female

DRUGS (1)
  1. REMODULIN [Suspect]
     Dosage: 95.04 UG/KG (0.066 UG/KG,1 IN 1 MIN),INTRAVENOUS
     Route: 042

REACTIONS (4)
  - HIP FRACTURE [None]
  - RASH [None]
  - ARTHRITIS INFECTIVE [None]
  - URTICARIA [None]
